FAERS Safety Report 12918813 (Version 1)
Quarter: 2016Q4

REPORT INFORMATION
  Report Type: Spontaneous
  Country: US (occurrence: US)
  Receive Date: 20161107
  Receipt Date: 20161107
  Transmission Date: 20170207
  Serious: Yes (Hospitalization, Other)
  Sender: FDA-Public Use
  Company Number: US-ASTELLAS-2016US043272

PATIENT
  Age: 48 Year
  Sex: Female

DRUGS (2)
  1. TACROLIMUS. [Suspect]
     Active Substance: TACROLIMUS
     Indication: HEART TRANSPLANT
     Route: 065
  2. TACROLIMUS. [Suspect]
     Active Substance: TACROLIMUS
     Route: 065

REACTIONS (7)
  - Squamous cell carcinoma [Unknown]
  - Toxicity to various agents [Unknown]
  - Genital herpes [Unknown]
  - Epstein-Barr virus infection [Unknown]
  - Kaposi^s sarcoma [Unknown]
  - Post transplant lymphoproliferative disorder [Recovered/Resolved]
  - Renal failure [Unknown]
